FAERS Safety Report 21421022 (Version 4)
Quarter: 2022Q4

REPORT INFORMATION
  Report Type: Report from Study
  Country: JP (occurrence: JP)
  Receive Date: 20221007
  Receipt Date: 20221218
  Transmission Date: 20230113
  Serious: Yes (Other)
  Sender: FDA-Public Use
  Company Number: JP-SAKK-2020SA261751AA

PATIENT
  Age: 19 Year
  Sex: Male
  Weight: 46.3 kg

DRUGS (3)
  1. VANDETANIB [Suspect]
     Active Substance: VANDETANIB
     Indication: Medullary thyroid cancer
     Dosage: DAILY DOSE: 300 MG
     Route: 048
     Dates: start: 20190409
  2. CALCIUM POLYCARBOPHIL [Concomitant]
     Active Substance: CALCIUM POLYCARBOPHIL
     Indication: Irritable bowel syndrome
     Dosage: 1.2 G, TID
     Route: 048
  3. MIYA-BM [Concomitant]
     Active Substance: CLOSTRIDIUM BUTYRICUM SPORES STRAIN M-55
     Indication: Irritable bowel syndrome
     Dosage: DAILY DOSE: 3 G
     Route: 048

REACTIONS (3)
  - Enterocolitis [Recovered/Resolved]
  - Photosensitivity reaction [Recovering/Resolving]
  - Dermatitis acneiform [Recovering/Resolving]

NARRATIVE: CASE EVENT DATE: 20190515
